FAERS Safety Report 5453528-X (Version None)
Quarter: 2007Q3

REPORT INFORMATION
  Report Type: 
  Country: None (occurrence: None)
  Receive Date: 20070913
  Receipt Date: 20070831
  Transmission Date: 20080115
  Serious: Yes (Other)
  Sender: FDA-Public Use
  Company Number: 20070226

PATIENT
  Age: 49 Year
  Sex: Female

DRUGS (2)
  1. VENOFER [Suspect]
     Indication: IRON DEFICIENCY
     Dosage: 100 MG ONCE
     Dates: start: 20070704, end: 20070704
  2. VENOFER [Suspect]
     Indication: IRON DEFICIENCY
     Dosage: INTRAVENOUS DRIP
     Route: 041
     Dates: start: 20070802, end: 20070814

REACTIONS (1)
  - DIARRHOEA [None]
